FAERS Safety Report 5517395-8 (Version None)
Quarter: 2007Q4

REPORT INFORMATION
  Report Type: 
  Country: None (occurrence: None)
  Receive Date: 20071109
  Receipt Date: 20071029
  Transmission Date: 20080405
  Serious: Yes (Other)
  Sender: FDA-Public Use
  Company Number: 2007CH003889

PATIENT
  Age: 70 Year
  Sex: Male

DRUGS (3)
  1. ALOXI [Suspect]
     Indication: PROPHYLAXIS OF NAUSEA AND VOMITING
     Dosage: 0.25 MG, SINGLE, INTRAVENOUS
     Route: 042
     Dates: start: 20070914, end: 20070914
  2. ETOPOSIDE [Suspect]
     Indication: SMALL CELL LUNG CANCER STAGE UNSPECIFIED
     Dosage: 180 MG, INTRAVENOUS
     Route: 042
     Dates: start: 20070823
  3. CARBOPLATIN [Suspect]
     Indication: SMALL CELL LUNG CANCER STAGE UNSPECIFIED
     Dosage: 525 MG, INTRAVENOUS
     Route: 042
     Dates: start: 20070823

REACTIONS (2)
  - ANAPHYLACTOID REACTION [None]
  - STUPOR [None]
